FAERS Safety Report 4558378-4 (Version None)
Quarter: 2005Q1

REPORT INFORMATION
  Report Type: 
  Country: None (occurrence: None)
  Receive Date: 20050103
  Receipt Date: 20041108
  Transmission Date: 20050727
  Serious: Yes (Other)
  Sender: FDA-Public Use
  Company Number: 2004UW20858

PATIENT
  Age: 70 Year
  Sex: Female
  Weight: 71.667 kg

DRUGS (3)
  1. CRESTOR [Suspect]
     Dosage: 2.5 MG QOD PO
     Route: 048
     Dates: start: 20040901
  2. ZETIA [Concomitant]
  3. NORVASC [Concomitant]

REACTIONS (3)
  - BACK PAIN [None]
  - HYPOAESTHESIA [None]
  - PAIN IN EXTREMITY [None]
